FAERS Safety Report 13987331 (Version 3)
Quarter: 2018Q1

REPORT INFORMATION
  Report Type: Spontaneous
  Country: DE (occurrence: DE)
  Receive Date: 20170919
  Receipt Date: 20180207
  Transmission Date: 20180508
  Serious: Yes (Other)
  Sender: FDA-Public Use
  Company Number: DE-TEVA-805896GER

PATIENT
  Age: 77 Year
  Sex: Female
  Weight: 78 kg

DRUGS (7)
  1. HEPARIN-NATRIUM-25 000-RATIOPHARM [Suspect]
     Active Substance: HEPARIN SODIUM
     Dosage: 50000 IU (INTERNATIONAL UNIT) DAILY;
     Route: 065
     Dates: start: 20170823, end: 20170823
  2. METOPROLOL. [Concomitant]
     Active Substance: METOPROLOL
     Dosage: 95 MILLIGRAM DAILY; 1-0-1
  3. AMLODIPIN 5 MG [Concomitant]
     Dosage: 2.5 MILLIGRAM DAILY; 0.5-0-0
  4. VALSARTAN / HCT 160/12.5 [Concomitant]
     Dosage: 1-0-0
  5. TRANEXAMIC ACID. [Suspect]
     Active Substance: TRANEXAMIC ACID
     Route: 065
     Dates: start: 20170823, end: 20170823
  6. ATORVASTATIN 20 MG [Concomitant]
     Active Substance: ATORVASTATIN
     Dosage: 10 MILLIGRAM DAILY; 0-0-0.5
  7. ASPIRIN. [Concomitant]
     Active Substance: ASPIRIN
     Dosage: 100 MILLIGRAM DAILY; 0-1-0

REACTIONS (3)
  - Renal failure [Unknown]
  - Alanine aminotransferase increased [Unknown]
  - Transaminases increased [Unknown]

NARRATIVE: CASE EVENT DATE: 20170823
